FAERS Safety Report 15619228 (Version 1)
Quarter: 2018Q4

REPORT INFORMATION
  Report Type: Spontaneous
  Country: US (occurrence: US)
  Receive Date: 20181114
  Receipt Date: 20181114
  Transmission Date: 20190205
  Serious: No
  Sender: FDA-Public Use
  Company Number: US-SA-2018SA312793

PATIENT
  Age: 29 Year
  Sex: Female

DRUGS (1)
  1. ACT GENERIC (SODIUM FLUORIDE) [Suspect]
     Active Substance: SODIUM FLUORIDE
     Route: 065

REACTIONS (2)
  - Drug ineffective [Unknown]
  - Dry mouth [Unknown]
